FAERS Safety Report 18721332 (Version 2)
Quarter: 2022Q1

REPORT INFORMATION
  Report Type: Spontaneous
  Country: US (occurrence: US)
  Receive Date: 20210109
  Receipt Date: 20220317
  Transmission Date: 20220423
  Serious: No
  Sender: FDA-Public Use
  Company Number: US-TEVA-2021-US-1866816

PATIENT
  Age: 52 Year
  Sex: Female

DRUGS (1)
  1. TREPROSTINIL [Suspect]
     Active Substance: TREPROSTINIL
     Indication: Pulmonary arterial hypertension
     Dosage: DOSE OR AMOUNT: 20NG/KG/MIN?FREQUENCY: 30ML/24HRS, CONTINUOUS
     Route: 042
     Dates: start: 20191024

REACTIONS (3)
  - Dizziness [Unknown]
  - Chest pain [Unknown]
  - Paranasal sinus discomfort [Unknown]

NARRATIVE: CASE EVENT DATE: 20201214
